FAERS Safety Report 5168267-2 (Version None)
Quarter: 2006Q4

REPORT INFORMATION
  Report Type: 
  Country: None (occurrence: None)
  Receive Date: 20061201
  Receipt Date: 20061122
  Transmission Date: 20070319
  Serious: Yes (Disabling, Other)
  Sender: FDA-Public Use
  Company Number: A-CH2006-12485

PATIENT
  Age: 7 Year
  Sex: Female
  Weight: 25 kg

DRUGS (2)
  1. ZAVESCA [Suspect]
     Indication: NIEMANN-PICK DISEASE
     Dosage: 50 MG, TID, ORAL
     Route: 048
     Dates: start: 20050906
  2. TEGRETOL [Concomitant]

REACTIONS (4)
  - DISEASE PROGRESSION [None]
  - HYPOMETABOLISM [None]
  - NIEMANN-PICK DISEASE [None]
  - PRECOCIOUS PUBERTY [None]
